FAERS Safety Report 9569626 (Version 2)
Quarter: 2013Q3

REPORT INFORMATION
  Report Type: Spontaneous
  Country: US (occurrence: US)
  Receive Date: 20130930
  Receipt Date: 20130930
  Transmission Date: 20140515
  Serious: No
  Sender: FDA-Public Use
  Company Number: US-AMGEN-USASP2013053307

PATIENT
  Age: 64 Year
  Sex: Female
  Weight: 57 kg

DRUGS (3)
  1. ENBREL [Suspect]
     Indication: PRODUCT USED FOR UNKNOWN INDICATION
     Dosage: 50 MG, QWK
     Route: 058
  2. SYNTHROID [Concomitant]
     Dosage: 25 MUG, UNK
     Route: 048
  3. DESIPRAMINE [Concomitant]
     Dosage: 50 MG, UNK
     Route: 048

REACTIONS (1)
  - Nasopharyngitis [Recovered/Resolved]
